FAERS Safety Report 7065809-7 (Version None)
Quarter: 2010Q4

REPORT INFORMATION
  Report Type: 
  Country: None (occurrence: None)
  Receive Date: 20101027
  Receipt Date: 20101020
  Transmission Date: 20110411
  Serious: Yes (Other)
  Sender: FDA-Public Use
  Company Number: BR-ABBOTT-08P-020-0482743-00

PATIENT
  Sex: Female
  Weight: 63 kg

DRUGS (10)
  1. HUMIRA [Suspect]
     Indication: RHEUMATOID ARTHRITIS
     Dosage: 1 APPLICATION
     Route: 058
     Dates: start: 20080707, end: 20080801
  2. HUMIRA [Suspect]
     Dates: start: 20090111, end: 20090904
  3. HUMIRA [Suspect]
     Dates: start: 20080701
  4. METHOTREXATE [Concomitant]
     Indication: VITAMIN SUPPLEMENTATION
  5. METHOTREXATE [Concomitant]
     Route: 058
  6. PREDSIM [Concomitant]
     Indication: RHEUMATOID ARTHRITIS
     Dates: start: 19820101
  7. PREDSIM [Concomitant]
     Indication: ARTHRITIS INFECTIVE
     Route: 048
  8. NAPROSYN [Concomitant]
     Indication: RHEUMATOID ARTHRITIS
     Dates: start: 20080901, end: 20081101
  9. NAPROSYN [Concomitant]
     Indication: ANTIINFLAMMATORY THERAPY
     Route: 048
     Dates: start: 20081101
  10. NAPROSYN [Concomitant]
     Route: 048

REACTIONS (11)
  - ARTHRALGIA [None]
  - ARTHRITIS INFECTIVE [None]
  - BONE EROSION [None]
  - COUGH [None]
  - JOINT INJURY [None]
  - JOINT STIFFNESS [None]
  - JOINT SWELLING [None]
  - NASOPHARYNGITIS [None]
  - PAIN [None]
  - PYREXIA [None]
  - WOUND [None]
